FAERS Safety Report 22400847 (Version 1)
Quarter: 2023Q2

REPORT INFORMATION
  Report Type: Spontaneous
  Country: US (occurrence: US)
  Receive Date: 20230602
  Receipt Date: 20230602
  Transmission Date: 20230722
  Serious: No
  Sender: FDA-Public Use
  Company Number: US-IDORSIA-005349-2023-US

PATIENT
  Sex: Female

DRUGS (1)
  1. QUVIVIQ [Suspect]
     Active Substance: DARIDOREXANT
     Indication: Insomnia
     Dosage: 50 MG, QD
     Route: 048

REACTIONS (6)
  - Diarrhoea [Unknown]
  - Secretion discharge [Unknown]
  - Nasal discomfort [Unknown]
  - Oropharyngeal pain [Unknown]
  - Eye movement disorder [Unknown]
  - Nausea [Unknown]
